FAERS Safety Report 9410882 (Version 1)
Quarter: 2013Q3

REPORT INFORMATION
  Report Type: Spontaneous
  Country: US (occurrence: US)
  Receive Date: 20130719
  Receipt Date: 20130719
  Transmission Date: 20140515
  Serious: Yes (Other)
  Sender: FDA-Public Use
  Company Number: CHPA2013US011227

PATIENT
  Age: 74 Year
  Sex: Female

DRUGS (3)
  1. SLOW FE BROWN [Suspect]
     Indication: HAEMOGLOBIN DECREASED
     Dosage: UNK, A FEW TIMES A WEEK
     Route: 048
  2. SLOW FE BROWN [Suspect]
     Dosage: UNK, BID
     Route: 048
  3. SLOW FE BROWN [Suspect]
     Dosage: UNK, QD
     Route: 048

REACTIONS (5)
  - Hypertension [Unknown]
  - Disease recurrence [Unknown]
  - Therapeutic response unexpected [Unknown]
  - Off label use [Unknown]
  - Expired drug administered [Unknown]
